FAERS Safety Report 23402619 (Version 2)
Quarter: 2024Q2

REPORT INFORMATION
  Report Type: Spontaneous
  Country: US (occurrence: US)
  Receive Date: 20240115
  Receipt Date: 20240417
  Transmission Date: 20240716
  Serious: Yes (Other)
  Sender: FDA-Public Use
  Company Number: US-BRISTOL-MYERS SQUIBB COMPANY-2024-007168

PATIENT
  Age: 74 Year
  Sex: Male

DRUGS (1)
  1. OPDIVO [Suspect]
     Active Substance: NIVOLUMAB
     Indication: Lung neoplasm malignant
     Dosage: DOSE : 240MG;     FREQ : EVERY 14 DAYS; ROA: IV INFUSION; STRENGTH: 2 X 240MG VIALS IV SOLUTION

REACTIONS (2)
  - Pneumonitis [Unknown]
  - Pyrexia [Unknown]
